FAERS Safety Report 4309956-9 (Version None)
Quarter: 2004Q1

REPORT INFORMATION
  Report Type: 
  Country: None (occurrence: None)
  Receive Date: 20040303
  Receipt Date: 20040220
  Transmission Date: 20041129
  Serious: Yes (Other)
  Sender: FDA-Public Use
  Company Number: JP-BRISTOL-MYERS SQUIBB COMPANY-12520078

PATIENT
  Age: 61 Year
  Sex: Male

DRUGS (4)
  1. GATIFLO [Suspect]
     Indication: PNEUMONIA
     Route: 048
     Dates: start: 20040131, end: 20040203
  2. THEOLONG [Concomitant]
     Route: 048
     Dates: start: 20040113
  3. SPIROPENT [Concomitant]
     Route: 048
     Dates: start: 20040113
  4. ULCERLMIN [Concomitant]
     Route: 048
     Dates: start: 20040122

REACTIONS (1)
  - HYPOGLYCAEMIA [None]
